FAERS Safety Report 10397121 (Version 1)
Quarter: 2014Q3

REPORT INFORMATION
  Report Type: Spontaneous
  Country: US (occurrence: None)
  Receive Date: 20140819
  Receipt Date: 20140819
  Transmission Date: 20150326
  Serious: No
  Sender: FDA-Public Use
  Company Number: None

PATIENT
  Age: 66 Year
  Sex: Male
  Weight: 70.31 kg

DRUGS (2)
  1. METOPROLOL SUCCINATE. [Suspect]
     Active Substance: METOPROLOL SUCCINATE
     Indication: HYPERTENSION
     Dosage: 2 PILLS TWICE DAILY TAKEN BY MOUTH
     Route: 048
  2. METOPROLOL SUCCINATE. [Suspect]
     Active Substance: METOPROLOL SUCCINATE
     Indication: HEART RATE INCREASED
     Dosage: 2 PILLS TWICE DAILY TAKEN BY MOUTH
     Route: 048

REACTIONS (7)
  - Product substitution issue [None]
  - Nervousness [None]
  - Heart rate abnormal [None]
  - Product quality issue [None]
  - Feeling jittery [None]
  - Heart rate decreased [None]
  - Drug ineffective [None]

NARRATIVE: CASE EVENT DATE: 20140621
